FAERS Safety Report 8579961-5 (Version None)
Quarter: 2012Q3

REPORT INFORMATION
  Report Type: 
  Country: None (occurrence: None)
  Receive Date: 20120731
  Receipt Date: 20120731
  Transmission Date: 20120928
  Serious: No
  Sender: FDA-Public Use
  Company Number: None

PATIENT
  Age: 79 Year
  Sex: Male
  Weight: 76.6579 kg

DRUGS (1)
  1. NEVANAC [Suspect]
     Indication: CATARACT OPERATION
     Dosage: ONE DROP IN RIGHT EYE 4 TIMES A DAY OPHTHALMIC
     Route: 047
     Dates: start: 20120725, end: 20120726

REACTIONS (4)
  - NAUSEA [None]
  - DIZZINESS [None]
  - BLOOD PRESSURE INCREASED [None]
  - RETCHING [None]
